FAERS Safety Report 24206790 (Version 6)
Quarter: 2024Q4

REPORT INFORMATION
  Report Type: Spontaneous
  Country: CA (occurrence: CA)
  Receive Date: 20240813
  Receipt Date: 20241226
  Transmission Date: 20250115
  Serious: No
  Sender: PFIZER
  Company Number: CA-PFIZER INC-202400231283

PATIENT
  Age: 11 Year
  Sex: Male

DRUGS (1)
  1. NGENLA [Suspect]
     Active Substance: SOMATROGON-GHLA
     Indication: Growth hormone deficiency
     Dosage: 22.5MG FROM THE 60MG PEN
     Route: 058
     Dates: start: 20240801

REACTIONS (1)
  - Injection site pain [Recovering/Resolving]

NARRATIVE: CASE EVENT DATE: 20240101
